FAERS Safety Report 15461297 (Version 1)
Quarter: 2018Q4

REPORT INFORMATION
  Report Type: Spontaneous
  Country: RO (occurrence: RO)
  Receive Date: 20181003
  Receipt Date: 20181003
  Transmission Date: 20190204
  Serious: Yes (Death, Hospitalization)
  Sender: FDA-Public Use
  Company Number: RO-PFIZER INC-2018399448

PATIENT
  Age: 68 Year
  Sex: Female
  Weight: 70 kg

DRUGS (7)
  1. SUTENT [Suspect]
     Active Substance: SUNITINIB MALATE
     Indication: RENAL NEOPLASM
     Dosage: UNK
     Dates: start: 201709, end: 20180821
  2. DOPAMINE HYDROCHLORIDE. [Concomitant]
     Active Substance: DOPAMINE HYDROCHLORIDE
     Dosage: UNK
  3. SODIUM BICARBONATE. [Concomitant]
     Active Substance: SODIUM BICARBONATE
     Dosage: 2.4 %, UNK
  4. OMEPRAZOL [Concomitant]
     Active Substance: OMEPRAZOLE
     Dosage: UNK
  5. FUROSEMID [Concomitant]
     Active Substance: FUROSEMIDE
     Dosage: UNK
  6. CEFORT [Concomitant]
     Active Substance: CEFTRIAXONE SODIUM
     Dosage: UNK
  7. CIPRINOL [CIPROFLOXACIN HYDROCHLORIDE] [Concomitant]
     Dosage: UNK

REACTIONS (9)
  - Vertigo [Unknown]
  - General physical health deterioration [Unknown]
  - Oliguria [Unknown]
  - Abdominal pain [Unknown]
  - Somnolence [Unknown]
  - Death [Fatal]
  - Decreased appetite [Unknown]
  - Asthenia [Unknown]
  - Coma [Unknown]

NARRATIVE: CASE EVENT DATE: 20180821
